FAERS Safety Report 7158973-2 (Version None)
Quarter: 2010Q4

REPORT INFORMATION
  Report Type: 
  Country: None (occurrence: None)
  Receive Date: 20101214
  Receipt Date: 20101207
  Transmission Date: 20110411
  Serious: Yes (Other)
  Sender: FDA-Public Use
  Company Number: DE-SANOFI-AVENTIS-2010SA074038

PATIENT

DRUGS (1)
  1. QUENSYL [Suspect]

REACTIONS (1)
  - RETINAL TEAR [None]
